FAERS Safety Report 7672289-7 (Version None)
Quarter: 2011Q3

REPORT INFORMATION
  Report Type: 
  Country: None (occurrence: None)
  Receive Date: 20110809
  Receipt Date: 20110801
  Transmission Date: 20111222
  Serious: Yes (Hospitalization, Other)
  Sender: FDA-Public Use
  Company Number: PHEH2011US00695

PATIENT
  Age: 52 Year
  Sex: Female
  Weight: 83 kg

DRUGS (7)
  1. GLATIRAMER ACETATE [Concomitant]
     Indication: MULTIPLE SCLEROSIS
  2. SIMVASTATIN [Concomitant]
     Dosage: 40 MG, DAILY
     Dates: start: 20051101
  3. GILENYA [Suspect]
     Indication: MULTIPLE SCLEROSIS
     Dosage: 0.5 MG, DAILY
     Dates: start: 20100107
  4. ESTRATEST H.S. [Concomitant]
     Indication: HOT FLUSH
     Dates: start: 19920701
  5. AMANTADINE HCL [Concomitant]
     Indication: FATIGUE
     Dosage: 100 MG, DAILY
     Dates: start: 20090326
  6. TRAZODONE HCL [Concomitant]
     Indication: INSOMNIA
     Dosage: 1 MG, DAILY
     Dates: start: 20101101
  7. PREVACID [Concomitant]
     Indication: GASTROOESOPHAGEAL REFLUX DISEASE
     Dosage: 30 MG, DAILY
     Dates: start: 20090326

REACTIONS (3)
  - AMNESIA [None]
  - GAIT DISTURBANCE [None]
  - TREMOR [None]
